FAERS Safety Report 24256802 (Version 1)
Quarter: 2024Q3

REPORT INFORMATION
  Report Type: Spontaneous
  Country: US (occurrence: US)
  Receive Date: 20240828
  Receipt Date: 20240828
  Transmission Date: 20241017
  Serious: No
  Sender: ABBVIE
  Company Number: US-ABBVIE-5893922

PATIENT
  Age: 36 Year
  Sex: Female

DRUGS (4)
  1. BOTULINUM TOXIN TYPE A [Suspect]
     Active Substance: BOTULINUM TOXIN TYPE A
     Indication: Lip cosmetic procedure
     Dosage: TIME INTERVAL: AS NECESSARY: PERIORAL LIP LINES
     Route: 065
     Dates: start: 2023, end: 2023
  2. BOTULINUM TOXIN TYPE A [Suspect]
     Active Substance: BOTULINUM TOXIN TYPE A
     Indication: Lip cosmetic procedure
     Dosage: TIME INTERVAL: AS NECESSARY: PERIORAL LIP LINES
     Route: 065
     Dates: start: 20240705, end: 20240705
  3. BOTULINUM TOXIN TYPE A [Suspect]
     Active Substance: BOTULINUM TOXIN TYPE A
     Indication: Lip cosmetic procedure
     Dosage: TIME INTERVAL: AS NECESSARY: LIP VERMILLION BORDER
     Route: 065
     Dates: start: 20240705, end: 20240705
  4. BOTULINUM TOXIN TYPE A [Suspect]
     Active Substance: BOTULINUM TOXIN TYPE A
     Indication: Lip cosmetic procedure
     Dosage: TIME INTERVAL: AS NECESSARY: LIP VERMILLION BORDER
     Route: 065
     Dates: start: 2023, end: 2023

REACTIONS (1)
  - Off label use [Unknown]
